FAERS Safety Report 4725939-9 (Version None)
Quarter: 2005Q3

REPORT INFORMATION
  Report Type: 
  Country: None (occurrence: None)
  Receive Date: 20050727
  Receipt Date: 20050609
  Transmission Date: 20060218
  Serious: Yes (Other)
  Sender: FDA-Public Use
  Company Number: US-GLAXOSMITHKLINE-A0562042A

PATIENT
  Age: 79 Year
  Sex: Female

DRUGS (3)
  1. AVANDAMET [Suspect]
     Route: 048
     Dates: start: 20040701, end: 20041201
  2. GLYBURIDE [Concomitant]
  3. ECOTRIN [Concomitant]

REACTIONS (11)
  - ANOREXIA [None]
  - DIARRHOEA [None]
  - HEART RATE IRREGULAR [None]
  - JOINT SWELLING [None]
  - NAUSEA [None]
  - OEDEMA PERIPHERAL [None]
  - RETINAL OEDEMA [None]
  - STOMACH DISCOMFORT [None]
  - VISUAL ACUITY REDUCED [None]
  - VOMITING [None]
  - WEIGHT INCREASED [None]
